APPROVED DRUG PRODUCT: DOLOBID
Active Ingredient: DIFLUNISAL
Strength: 500MG **Federal Register determination that product was not discontinued or withdrawn for safety or effectiveness reasons**
Dosage Form/Route: TABLET;ORAL
Application: N018445 | Product #002
Applicant: MERCK AND CO INC
Approved: Apr 19, 1982 | RLD: Yes | RS: No | Type: DISCN